FAERS Safety Report 24683467 (Version 2)
Quarter: 2025Q2

REPORT INFORMATION
  Report Type: Spontaneous
  Country: JP (occurrence: JP)
  Receive Date: 20241201
  Receipt Date: 20250404
  Transmission Date: 20250716
  Serious: Yes (Death, Other)
  Sender: NOVO NORDISK
  Company Number: JP-NOVOPROD-1323516

PATIENT
  Sex: Male

DRUGS (1)
  1. RYBELSUS [Suspect]
     Active Substance: SEMAGLUTIDE
     Indication: Product used for unknown indication
     Dosage: 7 MG, QD
     Route: 048

REACTIONS (2)
  - Pancreatic carcinoma [Fatal]
  - Hepatic function abnormal [Recovering/Resolving]
